FAERS Safety Report 13472420 (Version 2)
Quarter: 2017Q2

REPORT INFORMATION
  Report Type: Report from Study
  Country: US (occurrence: CA)
  Receive Date: 20170424
  Receipt Date: 20170503
  Transmission Date: 20170830
  Serious: Yes (Other)
  Sender: FDA-Public Use
  Company Number: US-SUNOVION-2017SUN001678

PATIENT
  Age: 66 Year
  Sex: Male

DRUGS (4)
  1. MONTELUKAST [Concomitant]
     Active Substance: MONTELUKAST SODIUM
     Dosage: 10 MG, UNK
     Route: 065
  2. GLYCOPYRROLATE. [Suspect]
     Active Substance: GLYCOPYRROLATE
     Indication: PRODUCT USED FOR UNKNOWN INDICATION
     Dosage: 1 DF (50 UG), QD
     Route: 065
     Dates: start: 20150901
  3. ALVESCO [Concomitant]
     Active Substance: CICLESONIDE
     Dosage: 100 MG, UNK
     Route: 065
  4. VENTOLIN [Concomitant]
     Active Substance: ALBUTEROL SULFATE
     Dosage: 100 ?G, UNK
     Route: 065

REACTIONS (7)
  - Forced expiratory volume decreased [Unknown]
  - Secretion discharge [Not Recovered/Not Resolved]
  - Infection [Not Recovered/Not Resolved]
  - Rhinorrhoea [Unknown]
  - Dyspnoea exertional [Unknown]
  - Asthma [Unknown]
  - Sleep disorder [Unknown]

NARRATIVE: CASE EVENT DATE: 20161114
